FAERS Safety Report 13862535 (Version 2)
Quarter: 2017Q3

REPORT INFORMATION
  Report Type: Report from Study
  Country: JP (occurrence: JP)
  Receive Date: 20170814
  Receipt Date: 20170905
  Transmission Date: 20171127
  Serious: Yes (Hospitalization)
  Sender: FDA-Public Use
  Company Number: JP-CONCORDIA PHARMACEUTICALS INC.-E2B_00008324

PATIENT
  Age: 78 Year
  Sex: Male

DRUGS (10)
  1. SYMMETREL [Concomitant]
     Active Substance: AMANTADINE HYDROCHLORIDE
     Dates: end: 20161024
  2. PARIET [Concomitant]
     Active Substance: RABEPRAZOLE SODIUM
  3. SHAKUYAKUKANZOTO [Concomitant]
     Active Substance: HERBALS
  4. REQUIP [Concomitant]
     Active Substance: ROPINIROLE HYDROCHLORIDE
  5. HARNAL [Concomitant]
     Active Substance: TAMSULOSIN HYDROCHLORIDE
  6. DOPS [Concomitant]
     Active Substance: DROXIDOPA
  7. FD-OP SELEGILINE HYDROCHLORIDE [Concomitant]
  8. ZONISAMIDE CAPSULE [Suspect]
     Active Substance: ZONISAMIDE
     Indication: PARKINSON^S DISEASE
     Route: 048
     Dates: start: 20160722, end: 20160912
  9. NEODOPASTON [Concomitant]
     Active Substance: CARBIDOPA\LEVODOPA
  10. COMTAN [Concomitant]
     Active Substance: ENTACAPONE

REACTIONS (1)
  - Hallucination [Recovering/Resolving]

NARRATIVE: CASE EVENT DATE: 20160901
